FAERS Safety Report 7338648-7 (Version None)
Quarter: 2011Q1

REPORT INFORMATION
  Report Type: 
  Country: None (occurrence: None)
  Receive Date: 20110308
  Receipt Date: 20101007
  Transmission Date: 20110831
  Serious: Yes (Hospitalization)
  Sender: FDA-Public Use
  Company Number: A0886467A

PATIENT
  Age: 50 Year
  Sex: Female

DRUGS (1)
  1. AVANDIA [Suspect]
     Dosage: 8MG TWICE PER DAY
     Route: 048
     Dates: end: 20010101

REACTIONS (4)
  - MYOCARDIAL INFARCTION [None]
  - IMPLANTABLE DEFIBRILLATOR INSERTION [None]
  - HYPERTENSION [None]
  - CARDIAC OPERATION [None]
